FAERS Safety Report 8390843-4 (Version None)
Quarter: 2012Q2

REPORT INFORMATION
  Report Type: 
  Country: None (occurrence: None)
  Receive Date: 20120529
  Receipt Date: 20120522
  Transmission Date: 20120825
  Serious: Yes (Life-Threatening)
  Sender: FDA-Public Use
  Company Number: JP-ASTELLAS-2012JP004147

PATIENT
  Age: 73 Year
  Sex: Female

DRUGS (3)
  1. VESICARE [Suspect]
     Indication: STRESS URINARY INCONTINENCE
  2. VESICARE [Suspect]
     Indication: URGE INCONTINENCE
     Dosage: 5 MG, UNKNOWN/D
     Route: 048
     Dates: start: 20120508, end: 20120509
  3. LEVOFLOXACIN [Suspect]
     Dosage: 500 MG, UNKNOWN/D
     Route: 048

REACTIONS (3)
  - CARDIAC ARREST [None]
  - BRADYCARDIA [None]
  - ELECTROCARDIOGRAM QT PROLONGED [None]
